FAERS Safety Report 7353083-3 (Version None)
Quarter: 2011Q1

REPORT INFORMATION
  Report Type: 
  Country: None (occurrence: None)
  Receive Date: 20110315
  Receipt Date: 20110307
  Transmission Date: 20110831
  Serious: Yes (Hospitalization)
  Sender: FDA-Public Use
  Company Number: B0705836A

PATIENT
  Sex: Male

DRUGS (2)
  1. ASPIRIN [Concomitant]
     Dosage: 100MG PER DAY
     Route: 048
  2. AUGMENTIN '125' [Suspect]
     Indication: TOOTH DISORDER
     Dosage: 125MG SINGLE DOSE
     Route: 048
     Dates: start: 20110301, end: 20110301

REACTIONS (2)
  - URTICARIA [None]
  - LIP SWELLING [None]
